FAERS Safety Report 6245237-4 (Version None)
Quarter: 2009Q2

REPORT INFORMATION
  Report Type: 
  Country: None (occurrence: None)
  Receive Date: 20090623
  Receipt Date: 20090623
  Transmission Date: 20091009
  Serious: Yes (Other)
  Sender: FDA-Public Use
  Company Number: None

PATIENT
  Age: 13 Year
  Sex: Female
  Weight: 49.8957 kg

DRUGS (3)
  1. SINGULAIR [Suspect]
     Indication: SEASONAL ALLERGY
     Dosage: 1X/DAY PO
     Route: 048
     Dates: start: 20070415, end: 20070807
  2. NASONEX [Concomitant]
  3. ELESTAT [Concomitant]

REACTIONS (1)
  - HALLUCINATION, AUDITORY [None]
